FAERS Safety Report 14733452 (Version 1)
Quarter: 2018Q2

REPORT INFORMATION
  Report Type: Spontaneous
  Country: US (occurrence: US)
  Receive Date: 20180409
  Receipt Date: 20180409
  Transmission Date: 20180711
  Serious: Yes (Other)
  Sender: FDA-Public Use
  Company Number: US-TEVA-2018-US-878667

PATIENT
  Sex: Female

DRUGS (1)
  1. METRONIDAZOLE. [Suspect]
     Active Substance: METRONIDAZOLE
     Indication: GIARDIASIS
     Dosage: 1500 MILLIGRAM DAILY;
     Route: 065
     Dates: start: 20180301, end: 20180316

REACTIONS (8)
  - Nephrolithiasis [Unknown]
  - Back pain [Not Recovered/Not Resolved]
  - Dysuria [Unknown]
  - Blood urine present [Unknown]
  - Fungal infection [Unknown]
  - Nausea [Unknown]
  - Abdominal pain upper [Unknown]
  - Decreased appetite [Not Recovered/Not Resolved]

NARRATIVE: CASE EVENT DATE: 20180301
